FAERS Safety Report 12922304 (Version 2)
Quarter: 2016Q4

REPORT INFORMATION
  Report Type: Report from Study
  Country: US (occurrence: US)
  Receive Date: 20161108
  Receipt Date: 20161221
  Transmission Date: 20170207
  Serious: Yes (Death, Hospitalization, Other)
  Sender: FDA-Public Use
  Company Number: US-BAYER-2016-153084

PATIENT
  Age: 74 Year
  Sex: Female

DRUGS (4)
  1. STIVARGA [Suspect]
     Active Substance: REGORAFENIB
     Indication: COLON CANCER
     Dosage: 80 MG, DAILY FOR 21 DAYS ON AND 7 DAYS OFF
     Route: 048
     Dates: start: 2016
  2. STIVARGA [Suspect]
     Active Substance: REGORAFENIB
     Indication: COLON CANCER
     Dosage: DAILY DOSE 80 MG
     Route: 048
     Dates: start: 20160617, end: 201606
  3. STIVARGA [Suspect]
     Active Substance: REGORAFENIB
     Indication: COLON CANCER
     Dosage: ALTERNATING BETWEEN 40 MG AND 80 MG EVERY OTHER DAY
     Route: 048
     Dates: start: 2016, end: 2016
  4. STIVARGA [Suspect]
     Active Substance: REGORAFENIB
     Indication: COLON CANCER
     Dosage: DAILY DOSE 40 MG
     Route: 048
     Dates: start: 2016, end: 2016

REACTIONS (6)
  - Dysstasia [None]
  - Death [Fatal]
  - Adverse drug reaction [Recovered/Resolved]
  - Lung disorder [None]
  - Gait disturbance [None]
  - Activities of daily living impaired [None]

NARRATIVE: CASE EVENT DATE: 2016
